FAERS Safety Report 22081933 (Version 2)
Quarter: 2023Q1

REPORT INFORMATION
  Report Type: Spontaneous
  Country: CA (occurrence: CA)
  Receive Date: 20230310
  Receipt Date: 20230325
  Transmission Date: 20230418
  Serious: Yes (Other)
  Sender: FDA-Public Use
  Company Number: CA-CELLTRION INC.-2023CA004812

PATIENT

DRUGS (2)
  1. INFLECTRA [Suspect]
     Active Substance: INFLIXIMAB-DYYB
     Indication: Colitis ulcerative
     Dosage: 5 MG/KG, EVERY 8 WEEKS, PATIENT RECEIVED FIRST 2 DOSES IN HOSPITAL
     Route: 042
     Dates: start: 20230118, end: 20230201
  2. INFLECTRA [Suspect]
     Active Substance: INFLIXIMAB-DYYB
     Dosage: 5 MG/KG, EVERY 8 WEEKS, PATIENT RECEIVED FIRST 2 DOSES IN HOSPITAL
     Route: 042
     Dates: start: 20230201

REACTIONS (2)
  - Neoplasm malignant [Unknown]
  - Off label use [Unknown]
